FAERS Safety Report 7633861-3 (Version None)
Quarter: 2011Q3

REPORT INFORMATION
  Report Type: 
  Country: None (occurrence: None)
  Receive Date: 20110725
  Receipt Date: 20110718
  Transmission Date: 20111222
  Serious: Yes (Hospitalization)
  Sender: FDA-Public Use
  Company Number: DE-ABBOTT-11P-062-0840359-00

PATIENT
  Age: 58 Year
  Sex: Male

DRUGS (16)
  1. SEROQUEL [Suspect]
     Dosage: 300 MG DAILY
     Route: 048
     Dates: start: 20100802, end: 20100822
  2. SERTRALINE HYDROCHLORIDE [Suspect]
     Dosage: 15 MG DAILY
     Route: 048
     Dates: start: 20100708, end: 20100712
  3. SEROQUEL [Suspect]
     Dosage: 400 MG DAILY
     Route: 048
     Dates: start: 20100628, end: 20100804
  4. AKINETON [Suspect]
     Dosage: 4 MG DAILY
     Dates: start: 20100710
  5. SERTRALINE HYDROCHLORIDE [Suspect]
     Dosage: 200 MG DAILY
     Route: 048
     Dates: start: 20100713, end: 20100804
  6. SERTRALINE HYDROCHLORIDE [Suspect]
     Dosage: 100 MG DAILY
     Route: 048
     Dates: start: 20100807
  7. DIAZEPAM [Concomitant]
     Route: 048
     Dates: start: 20100720, end: 20100804
  8. SEROQUEL [Suspect]
     Dosage: 400MG - 600MG DAILY
     Route: 048
     Dates: start: 20100622, end: 20100627
  9. SEROQUEL [Suspect]
     Dosage: 600MG - 100MG DAILY
     Route: 048
     Dates: start: 20100805, end: 20100811
  10. DIAZEPAM [Concomitant]
     Route: 048
     Dates: start: 20100716, end: 20100719
  11. SERTRALINE HYDROCHLORIDE [Suspect]
     Dosage: 100MG DAILY
     Route: 067
     Dates: start: 20100609, end: 20100707
  12. SERTRALINE HYDROCHLORIDE [Suspect]
     Dosage: 15 MG DAILY
     Route: 048
     Dates: start: 20100805, end: 20100806
  13. AKINETON [Suspect]
     Indication: PRODUCT USED FOR UNKNOWN INDICATION
     Dosage: 2 MG DAILY
     Route: 048
     Dates: start: 20100625, end: 20100709
  14. SEROQUEL [Suspect]
     Indication: PRODUCT USED FOR UNKNOWN INDICATION
     Dosage: 200MG - 600MG DAILY
     Route: 048
     Dates: start: 20100522, end: 20100602
  15. DIAZEPAM [Concomitant]
     Indication: PRODUCT USED FOR UNKNOWN INDICATION
     Route: 048
     Dates: start: 20100624, end: 20100715
  16. SERTRALINE HYDROCHLORIDE [Suspect]
     Indication: PRODUCT USED FOR UNKNOWN INDICATION
     Dosage: 50 MG DAILY
     Route: 048
     Dates: start: 20100527, end: 20100608

REACTIONS (1)
  - DELIRIUM [None]
